FAERS Safety Report 8198829 (Version 5)
Quarter: 2013Q1

REPORT INFORMATION
  Report Type: Spontaneous
  Country: US (occurrence: US)
  Receive Date: 20111025
  Receipt Date: 20130204
  Transmission Date: 20140127
  Serious: Yes (Hospitalization, Other)
  Sender: FDA-Public Use
  Company Number: US-ELI_LILLY_AND_COMPANY-US201110004545

PATIENT
  Sex: Male
  Weight: 109.75 kg

DRUGS (3)
  1. BYETTA [Suspect]
     Indication: PRODUCT USED FOR UNKNOWN INDICATION
     Dosage: UNK
     Dates: start: 200708, end: 201005
  2. ANTIDEPRESSANTS [Concomitant]
     Dosage: UNK
     Dates: start: 200604
  3. VICODIN [Concomitant]
     Indication: PAIN
     Dosage: 750 DF, UNK
     Dates: start: 201102

REACTIONS (4)
  - Cholelithiasis [Recovered/Resolved]
  - Pancreatitis [Unknown]
  - Pancreatitis relapsing [Unknown]
  - Diarrhoea [Unknown]
